FAERS Safety Report 23860882 (Version 2)
Quarter: 2024Q2

REPORT INFORMATION
  Report Type: Spontaneous
  Country: US (occurrence: US)
  Receive Date: 20240516
  Receipt Date: 20240603
  Transmission Date: 20240715
  Serious: No
  Sender: FDA-Public Use
  Company Number: US-TEVA-VS-3193585

PATIENT
  Age: 60 Year
  Sex: Female

DRUGS (1)
  1. LENALIDOMIDE [Suspect]
     Active Substance: LENALIDOMIDE
     Indication: Plasmacytoma
     Route: 065
     Dates: start: 20231004

REACTIONS (3)
  - Fatigue [Unknown]
  - Peripheral swelling [Unknown]
  - Paraesthesia [Unknown]
